FAERS Safety Report 19999095 (Version 1)
Quarter: 2021Q4

REPORT INFORMATION
  Report Type: Spontaneous
  Country: BR (occurrence: BR)
  Receive Date: 20211026
  Receipt Date: 20211026
  Transmission Date: 20220303
  Serious: Yes (Other)
  Sender: FDA-Public Use
  Company Number: BR-SCALL-2021-BR-000118

PATIENT
  Sex: Male

DRUGS (4)
  1. DUTASTERIDE\TAMSULOSIN HYDROCHLORIDE [Suspect]
     Active Substance: DUTASTERIDE\TAMSULOSIN HYDROCHLORIDE
     Indication: Urinary retention
     Route: 065
  2. TADALAFIL [Suspect]
     Active Substance: TADALAFIL
     Route: 065
  3. VALSARTAN [Concomitant]
     Active Substance: VALSARTAN
     Route: 065
  4. GLUCOSAMINE [Concomitant]
     Active Substance: GLUCOSAMINE
     Route: 065

REACTIONS (6)
  - Erectile dysfunction [Unknown]
  - Rash [Unknown]
  - Pruritus [Unknown]
  - Urticaria [Unknown]
  - Eczema [Unknown]
  - Scratch [Unknown]
